FAERS Safety Report 12798309 (Version 1)
Quarter: 2016Q3

REPORT INFORMATION
  Report Type: Spontaneous
  Country: PH (occurrence: PH)
  Receive Date: 20160930
  Receipt Date: 20160930
  Transmission Date: 20161109
  Serious: Yes (Death, Other)
  Sender: FDA-Public Use
  Company Number: PH-JNJFOC-20160927582

PATIENT
  Age: 39 Year
  Sex: Female
  Weight: 29.3 kg

DRUGS (1)
  1. BEDAQUILINE [Suspect]
     Active Substance: BEDAQUILINE
     Indication: TUBERCULOSIS
     Dosage: ONCE A DAAY FOR TWO WEEKS
     Route: 048
     Dates: start: 20160921, end: 20160926

REACTIONS (2)
  - Death [Fatal]
  - Generalised tonic-clonic seizure [Unknown]

NARRATIVE: CASE EVENT DATE: 20160926
